FAERS Safety Report 18066303 (Version 1)
Quarter: 2020Q3

REPORT INFORMATION
  Report Type: Spontaneous
  Country: FR (occurrence: FR)
  Receive Date: 20200724
  Receipt Date: 20200724
  Transmission Date: 20201103
  Serious: Yes (Other)
  Sender: FDA-Public Use
  Company Number: FR-PFIZER INC-2020278863

PATIENT
  Age: 9 Year
  Sex: Male

DRUGS (3)
  1. TRAMADOL. [Suspect]
     Active Substance: TRAMADOL
     Indication: INTERCOSTAL NEURALGIA
     Dosage: 1 DF, AS NEEDED
     Route: 048
     Dates: start: 20200617, end: 2020
  2. ADVIL [Suspect]
     Active Substance: IBUPROFEN
     Indication: INTERCOSTAL NEURALGIA
     Dosage: 1 DF, AS NEEDED
     Route: 048
     Dates: start: 20200617, end: 2020
  3. CODOLIPRANE [Suspect]
     Active Substance: ACETAMINOPHEN\CODEINE PHOSPHATE
     Indication: INTERCOSTAL NEURALGIA
     Dosage: 1 DF, AS NEEDED
     Route: 048
     Dates: start: 20200617, end: 2020

REACTIONS (3)
  - Product use issue [Unknown]
  - Hallucination, visual [Recovered/Resolved]
  - Dyschromatopsia [Recovered/Resolved]

NARRATIVE: CASE EVENT DATE: 20200617
